FAERS Safety Report 10279933 (Version 2)
Quarter: 2014Q3

REPORT INFORMATION
  Report Type: Spontaneous
  Country: BR (occurrence: BR)
  Receive Date: 20140707
  Receipt Date: 20140909
  Transmission Date: 20150326
  Serious: Yes (Other)
  Sender: FDA-Public Use
  Company Number: BR-SA-2013SA119248

PATIENT
  Age: 23 Year
  Sex: Female
  Weight: 70 kg

DRUGS (4)
  1. LANTUS [Suspect]
     Active Substance: INSULIN GLARGINE
     Indication: TYPE 1 DIABETES MELLITUS
     Route: 058
  2. DEVICE NOS [Suspect]
     Active Substance: DEVICE
     Indication: DEVICE THERAPY
  3. FOLIC ACID. [Concomitant]
     Active Substance: FOLIC ACID
     Dates: start: 201308
  4. LANTUS [Suspect]
     Active Substance: INSULIN GLARGINE
     Indication: TYPE 1 DIABETES MELLITUS
     Dosage: DOSE: 20-10-5?STRENGTH: 3 ML CARTRIDGE
     Route: 058
     Dates: start: 2004

REACTIONS (8)
  - Hyperglycaemia [Not Recovered/Not Resolved]
  - Toxoplasmosis [Recovered/Resolved]
  - Hypoglycaemia [Recovered/Resolved]
  - Exposure during pregnancy [Unknown]
  - Off label use [Unknown]
  - Caesarean section [Unknown]
  - Hypertension [Recovered/Resolved]
  - Injection site pain [Recovered/Resolved]

NARRATIVE: CASE EVENT DATE: 2001
